FAERS Safety Report 16464492 (Version 2)
Quarter: 2019Q2

REPORT INFORMATION
  Report Type: Spontaneous
  Country: IL (occurrence: IL)
  Receive Date: 20190621
  Receipt Date: 20190625
  Transmission Date: 20190711
  Serious: Yes (Other)
  Sender: FDA-Public Use
  Company Number: IL-TAKEDA-2019TEU007169

PATIENT
  Age: 30 Year
  Sex: Male

DRUGS (1)
  1. COLCHICINE. [Suspect]
     Active Substance: COLCHICINE
     Indication: FAMILIAL MEDITERRANEAN FEVER
     Dosage: UNK
     Route: 065

REACTIONS (3)
  - Keratoconus [Unknown]
  - Corneal perforation [Unknown]
  - Impaired healing [Unknown]
